APPROVED DRUG PRODUCT: LABETALOL HYDROCHLORIDE
Active Ingredient: LABETALOL HYDROCHLORIDE
Strength: 200MG
Dosage Form/Route: TABLET;ORAL
Application: A209603 | Product #002 | TE Code: AB
Applicant: APPCO PHARMA LLC
Approved: Jun 20, 2018 | RLD: No | RS: No | Type: RX